FAERS Safety Report 21263419 (Version 1)
Quarter: 2022Q3

REPORT INFORMATION
  Report Type: Report from Study
  Country: US (occurrence: US)
  Receive Date: 20220829
  Receipt Date: 20220829
  Transmission Date: 20221027
  Serious: Yes (Death, Other)
  Sender: FDA-Public Use
  Company Number: US-ACADIA PHARMACEUTICALS INC.-ACA-2022-PIM-002728

PATIENT
  Age: 92 Year
  Sex: Male

DRUGS (23)
  1. NUPLAZID [Suspect]
     Active Substance: PIMAVANSERIN TARTRATE
     Indication: Hallucination
     Dosage: 34 MILLIGRAM, QD
     Route: 048
     Dates: start: 20220720, end: 202208
  2. MUCINEX [Concomitant]
     Active Substance: GUAIFENESIN
  3. MORPHINE [Concomitant]
     Active Substance: MORPHINE
  4. LORAZEPAM [Concomitant]
     Active Substance: LORAZEPAM
  5. ATROPINE [Concomitant]
     Active Substance: ATROPINE
  6. ROBITUSSIN COUGH AND CHEST CONGESTION DM [Concomitant]
     Active Substance: DEXTROMETHORPHAN HYDROBROMIDE\GUAIFENESIN
  7. TRAZODONE [Concomitant]
     Active Substance: TRAZODONE HYDROCHLORIDE
  8. DONEPEZIL [Concomitant]
     Active Substance: DONEPEZIL
  9. QUETIAPINE [Concomitant]
     Active Substance: QUETIAPINE
  10. ONDANSETRON [Concomitant]
     Active Substance: ONDANSETRON
  11. DOXYCYCLINE [Concomitant]
     Active Substance: DOXYCYCLINE
  12. BENZONATATE [Concomitant]
     Active Substance: BENZONATATE
  13. TRAMADOL [Concomitant]
     Active Substance: TRAMADOL
  14. SULFAMETHOXAZOLE\TRIMETHOPRIM [Concomitant]
     Active Substance: SULFAMETHOXAZOLE\TRIMETHOPRIM
  15. MYRBETRIQ [Concomitant]
     Active Substance: MIRABEGRON
  16. DEPAKOTE [Concomitant]
     Active Substance: DIVALPROEX SODIUM
  17. CYMBALTA [Concomitant]
     Active Substance: DULOXETINE HYDROCHLORIDE
  18. FLOMAX [Concomitant]
     Active Substance: TAMSULOSIN HYDROCHLORIDE
  19. ACETAMINOPHEN [Concomitant]
     Active Substance: ACETAMINOPHEN
  20. TRANSDERM [GLYCERYL TRINITRATE] [Concomitant]
  21. BACTRIM DS [Concomitant]
     Active Substance: SULFAMETHOXAZOLE\TRIMETHOPRIM
  22. CARBIDOPA\LEVODOPA [Concomitant]
     Active Substance: CARBIDOPA\LEVODOPA
  23. NEUPRO [Concomitant]
     Active Substance: ROTIGOTINE

REACTIONS (2)
  - Death [Fatal]
  - Dysphagia [Not Recovered/Not Resolved]

NARRATIVE: CASE EVENT DATE: 20220801
